FAERS Safety Report 17523551 (Version 1)
Quarter: 2020Q1

REPORT INFORMATION
  Report Type: Spontaneous
  Country: NO (occurrence: NO)
  Receive Date: 20200311
  Receipt Date: 20200311
  Transmission Date: 20200409
  Serious: Yes (Other)
  Sender: FDA-Public Use
  Company Number: NO-BIOGEN-2020BI00847814

PATIENT
  Age: 35 Year
  Sex: Female

DRUGS (1)
  1. TYSABRI [Suspect]
     Active Substance: NATALIZUMAB
     Indication: PRODUCT USED FOR UNKNOWN INDICATION
     Route: 065
     Dates: start: 201602, end: 201906

REACTIONS (5)
  - Hypoacusis [Unknown]
  - Neck pain [Unknown]
  - Fatigue [Unknown]
  - Monoplegia [Unknown]
  - Bladder disorder [Unknown]

NARRATIVE: CASE EVENT DATE: 201709
